FAERS Safety Report 4497299-2 (Version None)
Quarter: 2004Q3

REPORT INFORMATION
  Report Type: 
  Country: None (occurrence: None)
  Receive Date: 20040927
  Receipt Date: 20040722
  Transmission Date: 20050211
  Serious: No
  Sender: FDA-Public Use
  Company Number: USA040773379

PATIENT
  Age: 32 Year
  Sex: Male

DRUGS (3)
  1. STRATTERA [Suspect]
     Indication: ATTENTION DEFICIT/HYPERACTIVITY DISORDER
     Dosage: 25 MG
     Dates: start: 20040701
  2. ZOLOFT [Concomitant]
  3. NEURONTIN [Concomitant]

REACTIONS (2)
  - EJACULATION DISORDER [None]
  - SOMNOLENCE [None]
